FAERS Safety Report 11924029 (Version 3)
Quarter: 2016Q1

REPORT INFORMATION
  Report Type: Report from Study
  Country: US (occurrence: US)
  Receive Date: 20160118
  Receipt Date: 20160127
  Transmission Date: 20160526
  Serious: Yes (Hospitalization)
  Sender: FDA-Public Use
  Company Number: US-JNJFOC-20151222645

PATIENT
  Age: 68 Year
  Sex: Male

DRUGS (2)
  1. IBRUTINIB [Suspect]
     Active Substance: IBRUTINIB
     Indication: MANTLE CELL LYMPHOMA
     Route: 048
     Dates: start: 20150803
  2. CARFILZOMIB [Suspect]
     Active Substance: CARFILZOMIB
     Indication: MANTLE CELL LYMPHOMA
     Route: 042
     Dates: start: 20150803

REACTIONS (3)
  - Lacrimation increased [Recovered/Resolved]
  - Hypoaesthesia [Recovered/Resolved]
  - Burning sensation [Recovered/Resolved]

NARRATIVE: CASE EVENT DATE: 20150914
